FAERS Safety Report 23979237 (Version 1)
Quarter: 2024Q2

REPORT INFORMATION
  Report Type: Spontaneous
  Country: US (occurrence: US)
  Receive Date: 20240615
  Receipt Date: 20240615
  Transmission Date: 20240716
  Serious: No
  Sender: FDA-Public Use
  Company Number: US-AUROBINDO-AUR-APL-2024-014135

PATIENT
  Age: 73 Year
  Sex: Female
  Weight: 68.038 kg

DRUGS (1)
  1. CARBIDOPA\LEVODOPA [Suspect]
     Active Substance: CARBIDOPA\LEVODOPA
     Indication: Parkinson^s disease
     Dosage: TWO AND HALF TABLETS 3 TIMES A DAY
     Route: 065

REACTIONS (1)
  - Wrong technique in product usage process [Unknown]
